FAERS Safety Report 11707153 (Version 1)
Quarter: 2015Q4

REPORT INFORMATION
  Report Type: Spontaneous
  Country: DE (occurrence: DE)
  Receive Date: 20151106
  Receipt Date: 20151106
  Transmission Date: 20160304
  Serious: Yes (Hospitalization)
  Sender: FDA-Public Use
  Company Number: DE-TEVA-605084GER

PATIENT
  Age: 30 Year
  Sex: Male

DRUGS (13)
  1. CLOZAPIN [Suspect]
     Active Substance: CLOZAPINE
     Dosage: 300 MILLIGRAM DAILY;
     Route: 048
     Dates: start: 20150724
  2. CLOZAPIN [Suspect]
     Active Substance: CLOZAPINE
     Dosage: 50 - 175 MG
     Route: 048
     Dates: start: 20150820
  3. DIAZEPAM. [Suspect]
     Active Substance: DIAZEPAM
     Dosage: 40-30 MG
     Route: 048
     Dates: start: 20150722, end: 20150815
  4. CLOZAPIN [Suspect]
     Active Substance: CLOZAPINE
     Dosage: 100 MILLIGRAM DAILY;
     Route: 048
     Dates: start: 20150722
  5. CLOZAPIN [Suspect]
     Active Substance: CLOZAPINE
     Dosage: 25 MILLIGRAM DAILY;
     Route: 048
     Dates: start: 20150819
  6. CLOZAPIN [Suspect]
     Active Substance: CLOZAPINE
     Dosage: 150 MILLIGRAM DAILY;
     Route: 048
     Dates: start: 20150726
  7. CIATYL-Z ACUPHASE [Suspect]
     Active Substance: ZUCLOPENTHIXOL ACETATE
     Dosage: 150 MG MILLIGRAMS EVERY 3 DAYS
     Route: 030
     Dates: start: 20150721
  8. DIAZEPAM. [Suspect]
     Active Substance: DIAZEPAM
     Dosage: 25 MILLIGRAM DAILY;
     Route: 048
     Dates: start: 20150816
  9. CLOZAPIN [Suspect]
     Active Substance: CLOZAPINE
     Dosage: 200 MILLIGRAM DAILY;
     Route: 048
     Dates: start: 20150723
  10. CLOZAPIN [Suspect]
     Active Substance: CLOZAPINE
     Dosage: 400 MILLIGRAM DAILY;
     Route: 048
     Dates: start: 20150725
  11. CLOZAPIN [Suspect]
     Active Substance: CLOZAPINE
     Dosage: 50 MILLIGRAM DAILY;
     Route: 048
     Dates: start: 20150721
  12. CLOZAPIN [Suspect]
     Active Substance: CLOZAPINE
     Dosage: 175 MILLIGRAM DAILY;
     Route: 048
     Dates: start: 20150729, end: 20150730
  13. CLOZAPIN [Suspect]
     Active Substance: CLOZAPINE
     Dosage: 12.5 MILLIGRAM DAILY;
     Route: 048
     Dates: start: 20150817, end: 20150818

REACTIONS (1)
  - Subileus [Recovered/Resolved]

NARRATIVE: CASE EVENT DATE: 20150725
